FAERS Safety Report 4403567-2 (Version None)
Quarter: 2004Q3

REPORT INFORMATION
  Report Type: 
  Country: None (occurrence: None)
  Receive Date: 20040721
  Receipt Date: 20040719
  Transmission Date: 20050211
  Serious: Yes (Other)
  Sender: FDA-Public Use
  Company Number: US-GLAXOSMITHKLINE-A0518792A

PATIENT
  Age: 3 Year
  Sex: Male

DRUGS (3)
  1. LAMICTAL [Suspect]
     Dosage: 1.5MG TWICE PER DAY
     Route: 048
  2. PHENOBARBITAL TAB [Concomitant]
  3. ZANTAC [Concomitant]

REACTIONS (5)
  - CONVULSION [None]
  - HYPERHIDROSIS [None]
  - THERAPY NON-RESPONDER [None]
  - UPPER RESPIRATORY TRACT CONGESTION [None]
  - URINE OUTPUT DECREASED [None]
